FAERS Safety Report 4963359-2 (Version None)
Quarter: 2006Q2

REPORT INFORMATION
  Report Type: 
  Country: None (occurrence: None)
  Receive Date: 20060404
  Receipt Date: 20060404
  Transmission Date: 20061013
  Serious: No
  Sender: FDA-Public Use
  Company Number: None

PATIENT
  Age: 73 Year
  Sex: Male

DRUGS (1)
  1. LITHIUM CARBONATE [Suspect]
     Indication: AFFECTIVE DISORDER
     Dosage: 150 MG PO BID
     Route: 048

REACTIONS (5)
  - ABASIA [None]
  - ANTIPSYCHOTIC DRUG LEVEL ABOVE THERAPEUTIC [None]
  - LETHARGY [None]
  - MENTAL STATUS CHANGES [None]
  - TREMOR [None]
